FAERS Safety Report 6463055-9 (Version None)
Quarter: 2009Q4

REPORT INFORMATION
  Report Type: 
  Country: None (occurrence: None)
  Receive Date: 20091123
  Receipt Date: 20091110
  Transmission Date: 20100525
  Serious: Yes (Hospitalization)
  Sender: FDA-Public Use
  Company Number: 231138J09USA

PATIENT
  Age: 47 Year
  Sex: Female

DRUGS (4)
  1. REBIF [Suspect]
     Indication: MULTIPLE SCLEROSIS
     Dosage: SEE IMAGE
     Route: 058
     Dates: start: 20090626, end: 20090901
  2. UNSPECIFIED MEDICATIONS ALL (ALL OTHER THERAPEUTIC PRODUCTSO [Concomitant]
  3. TYLENOL [Concomitant]
  4. HYDROCODONE (HYDROCODONE) [Concomitant]

REACTIONS (4)
  - CONDITION AGGRAVATED [None]
  - DECUBITUS ULCER [None]
  - FATIGUE [None]
  - MULTIPLE SCLEROSIS [None]
